FAERS Safety Report 6004575-0 (Version None)
Quarter: 2008Q4

REPORT INFORMATION
  Report Type: 
  Country: None (occurrence: None)
  Receive Date: 20081216
  Receipt Date: 20071130
  Transmission Date: 20090506
  Serious: No
  Sender: FDA-Public Use
  Company Number: US-BRISTOL-MYERS SQUIBB COMPANY-14000756

PATIENT

DRUGS (5)
  1. PRAVACHOL [Suspect]
  2. ACEBUTOLOL [Concomitant]
  3. ACCUPRIL [Concomitant]
  4. ASPIRIN [Concomitant]
  5. SYNTHROID [Concomitant]

REACTIONS (1)
  - ACNE [None]
